FAERS Safety Report 4516942-2 (Version None)
Quarter: 2004Q4

REPORT INFORMATION
  Report Type: 
  Country: None (occurrence: None)
  Receive Date: 20041130
  Receipt Date: 20041117
  Transmission Date: 20050328
  Serious: Yes (Hospitalization)
  Sender: FDA-Public Use
  Company Number: 200247

PATIENT
  Age: 68 Year
  Sex: Female
  Weight: 58 kg

DRUGS (2)
  1. MABTHERA (RITUXIMAB) CONC FOR SOLUTION FOR INFUSION [Suspect]
     Indication: WALDENSTROM'S MACROGLOBULINAEMIA
     Dosage: 640 MG, INTRAVENOUS
     Route: 042
     Dates: start: 20030116
  2. FLUDARABINE PHOSPHATE [Suspect]
     Indication: WALDENSTROM'S MACROGLOBULINAEMIA
     Dosage: 35 MG, INTRAVENOUS
     Route: 042
     Dates: start: 20030116, end: 20030119

REACTIONS (4)
  - CONFUSIONAL STATE [None]
  - DISEASE RECURRENCE [None]
  - LYMPHOMA [None]
  - MEMORY IMPAIRMENT [None]
